FAERS Safety Report 9159028 (Version 1)
Quarter: 2013Q1

REPORT INFORMATION
  Report Type: Spontaneous
  Country: JP (occurrence: None)
  Receive Date: 20130311
  Receipt Date: 20130311
  Transmission Date: 20140127
  Serious: Yes (Death)
  Sender: FDA-Public Use
  Company Number: SYM-2013-01449

PATIENT
  Age: 73 Year
  Sex: Male

DRUGS (5)
  1. OXALIPLATIN [Suspect]
  2. AVASTIN [Suspect]
  3. IRINOTECAN HYDROCHLORIDE (IRINOTECAN HYDROCHLORIDE) [Concomitant]
  4. FLUOROURACIL [Suspect]
     Indication: COLON CANCER
  5. LEUCOVORIN CALCIUM [Suspect]
     Route: 042

REACTIONS (5)
  - Lung disorder [None]
  - Pyrexia [None]
  - Altered state of consciousness [None]
  - Blood lactate dehydrogenase increased [None]
  - Respiratory distress [None]
